FAERS Safety Report 5402709-X (Version None)
Quarter: 2007Q3

REPORT INFORMATION
  Report Type: 
  Country: None (occurrence: None)
  Receive Date: 20070801
  Receipt Date: 20070723
  Transmission Date: 20080115
  Serious: Yes (Other)
  Sender: FDA-Public Use
  Company Number: B0481501A

PATIENT
  Age: 64 Year
  Sex: Female

DRUGS (5)
  1. TOPOTECAN [Suspect]
     Indication: OVARIAN CANCER
     Dosage: 1.2MGM2 PER DAY
     Route: 042
     Dates: start: 20050314, end: 20050520
  2. DOXORUBICIN HCL [Concomitant]
  3. DOCETAXEL [Concomitant]
  4. CARBOPLATIN [Concomitant]
     Dosage: 5940MG CUMULATIVE DOSE
     Dates: start: 20030901, end: 20040422
  5. PACLITAXEL [Concomitant]
     Dosage: 2430MG CUMULATIVE DOSE
     Dates: start: 20030901, end: 20040422

REACTIONS (1)
  - LEUKAEMIA [None]
